FAERS Safety Report 9467586 (Version 1)
Quarter: 2013Q3

REPORT INFORMATION
  Report Type: Spontaneous
  Country: US (occurrence: US)
  Receive Date: 20130821
  Receipt Date: 20130821
  Transmission Date: 20140515
  Serious: Yes (Hospitalization)
  Sender: FDA-Public Use
  Company Number: US-INCYTE CORPORATION-2013IN001861

PATIENT
  Age: 81 Year
  Sex: Female

DRUGS (1)
  1. JAKAFI [Suspect]
     Indication: MYELODYSPLASTIC SYNDROME
     Dosage: 5 MG, BID
     Route: 048
     Dates: start: 201201

REACTIONS (1)
  - Hospitalisation [Unknown]
